FAERS Safety Report 11174940 (Version 1)
Quarter: 2015Q2

REPORT INFORMATION
  Report Type: Spontaneous
  Country: US (occurrence: None)
  Receive Date: 20150608
  Receipt Date: 20150608
  Transmission Date: 20150821
  Serious: Yes (Other)
  Sender: FDA-Public Use
  Company Number: None

PATIENT
  Age: 38 Year
  Sex: Female
  Weight: 70 kg

DRUGS (1)
  1. RITUXIMAB [Suspect]
     Active Substance: RITUXIMAB
     Indication: ACQUIRED EPIDERMOLYSIS BULLOSA
     Dosage: IVPB
     Dates: start: 20150604

REACTIONS (4)
  - Rash [None]
  - Throat tightness [None]
  - Palpitations [None]
  - Paraesthesia oral [None]

NARRATIVE: CASE EVENT DATE: 20150604
